FAERS Safety Report 8362102 (Version 2)
Quarter: 2015Q1

REPORT INFORMATION
  Report Type: Report from Study
  Country: US (occurrence: US)
  Receive Date: 20120130
  Receipt Date: 20150226
  Transmission Date: 20150721
  Serious: Yes (Death, Hospitalization)
  Sender: FDA-Public Use
  Company Number: US-ROCHE-1034003

PATIENT
  Sex: Male

DRUGS (30)
  1. ZOFRAN [Concomitant]
     Active Substance: ONDANSETRON HYDROCHLORIDE
     Route: 065
  2. ZOFRAN [Concomitant]
     Active Substance: ONDANSETRON HYDROCHLORIDE
     Route: 065
  3. AVASTIN [Suspect]
     Active Substance: BEVACIZUMAB
     Indication: LUNG NEOPLASM MALIGNANT
     Route: 065
     Dates: start: 20080421
  4. AVASTIN [Suspect]
     Active Substance: BEVACIZUMAB
     Indication: LUNG NEOPLASM MALIGNANT
  5. ZOMETA [Concomitant]
     Active Substance: ZOLEDRONIC ACID
     Route: 065
  6. MORPHINE [Concomitant]
     Active Substance: MORPHINE
     Route: 065
  7. REGLAN [Concomitant]
     Active Substance: METOCLOPRAMIDE HYDROCHLORIDE
     Route: 065
  8. DECADRON [Concomitant]
     Active Substance: DEXAMETHASONE
     Route: 065
  9. POTASSIUM CHLORIDE. [Concomitant]
     Active Substance: POTASSIUM CHLORIDE
     Route: 065
  10. HALDOL [Concomitant]
     Active Substance: HALOPERIDOL
     Route: 065
  11. MEGACE [Concomitant]
     Active Substance: MEGESTROL ACETATE
  12. BENADRYL [Concomitant]
     Active Substance: DIPHENHYDRAMINE HYDROCHLORIDE
     Route: 065
  13. MANNITOL. [Concomitant]
     Active Substance: MANNITOL
     Route: 065
  14. AVASTIN [Suspect]
     Active Substance: BEVACIZUMAB
     Indication: BRONCHIAL CARCINOMA
     Route: 065
  15. GEMZAR [Concomitant]
     Active Substance: GEMCITABINE HYDROCHLORIDE
     Route: 065
  16. DECADRON [Concomitant]
     Active Substance: DEXAMETHASONE
     Route: 065
  17. MORPHINE [Concomitant]
     Active Substance: MORPHINE
     Route: 065
  18. MAALOX (CALCIUM CARBONATE) [Concomitant]
     Dosage: 30 CC
     Route: 065
  19. CELEXA (UNITED STATES) [Concomitant]
     Route: 065
  20. PHENERGAN [Concomitant]
     Active Substance: PROMETHAZINE HYDROCHLORIDE
  21. MORPHINE [Concomitant]
     Active Substance: MORPHINE
     Route: 065
  22. ZOFRAN [Concomitant]
     Active Substance: ONDANSETRON HYDROCHLORIDE
     Route: 065
  23. DECADRON [Concomitant]
     Active Substance: DEXAMETHASONE
     Route: 065
  24. MAGNESIUM SULFATE. [Concomitant]
     Active Substance: MAGNESIUM SULFATE
     Route: 065
  25. ATIVAN [Concomitant]
     Active Substance: LORAZEPAM
     Indication: ANXIETY
     Dosage: 1-2 MG, AS NEEDED
     Route: 048
  26. CISPLATIN. [Concomitant]
     Active Substance: CISPLATIN
     Route: 065
  27. ZOFRAN [Concomitant]
     Active Substance: ONDANSETRON HYDROCHLORIDE
     Route: 065
  28. LASIX [Concomitant]
     Active Substance: FUROSEMIDE
     Route: 065
  29. ALOXI [Concomitant]
     Active Substance: PALONOSETRON HYDROCHLORIDE
     Route: 065
  30. SODIUM CHLORIDE. [Concomitant]
     Active Substance: SODIUM CHLORIDE
     Route: 065

REACTIONS (31)
  - Musculoskeletal chest pain [Unknown]
  - Fatigue [Unknown]
  - General physical health deterioration [Unknown]
  - Gait disturbance [Unknown]
  - Gastric disorder [Unknown]
  - Constipation [Unknown]
  - Weight decreased [Unknown]
  - Back pain [Unknown]
  - Pyrexia [Unknown]
  - Cough [Unknown]
  - Nerve block [Unknown]
  - Depression [Unknown]
  - Dyspnoea exertional [Unknown]
  - Nausea [Unknown]
  - Dehydration [Unknown]
  - Dyspepsia [Unknown]
  - Death [Fatal]
  - Syncope [Unknown]
  - Vomiting [Unknown]
  - Orthostatic hypotension [Unknown]
  - Sinus tachycardia [Unknown]
  - Haemoglobin decreased [Unknown]
  - Decreased appetite [Unknown]
  - Asthenia [Unknown]
  - Dyspnoea [Unknown]
  - Abdominal discomfort [Unknown]
  - Dizziness postural [Unknown]
  - Proctalgia [Unknown]
  - Feeling abnormal [Unknown]
  - Dysphoria [Unknown]
  - Metastases to bone [Unknown]
